FAERS Safety Report 6626183-0 (Version None)
Quarter: 2010Q1

REPORT INFORMATION
  Report Type: 
  Country: None (occurrence: None)
  Receive Date: 20100309
  Receipt Date: 20100309
  Transmission Date: 20100710
  Serious: Yes (Hospitalization)
  Sender: FDA-Public Use
  Company Number: None

PATIENT
  Age: 80 Year
  Sex: Male
  Weight: 62.73 kg

DRUGS (1)
  1. MECLIZINE [Suspect]
     Dosage: 25 MG BID PO
     Route: 048
     Dates: start: 20090703, end: 20090818

REACTIONS (2)
  - AMNESIA [None]
  - CONFUSIONAL STATE [None]
